FAERS Safety Report 17465186 (Version 1)
Quarter: 2020Q1

REPORT INFORMATION
  Report Type: Other
  Country: GB (occurrence: GB)
  Receive Date: 20200227
  Receipt Date: 20200227
  Transmission Date: 20200409
  Serious: Yes (Life-Threatening)
  Sender: FDA-Public Use
  Company Number: GB-MACLEODS PHARMACEUTICALS US LTD-MAC2020025311

PATIENT

DRUGS (10)
  1. METRONIDAZOLE. [Concomitant]
     Active Substance: METRONIDAZOLE
     Indication: HELICOBACTER INFECTION
     Dosage: 800 MILLIGRAM, QD
     Route: 065
     Dates: start: 20191129
  2. CLARITHROMYCIN. [Concomitant]
     Active Substance: CLARITHROMYCIN
     Indication: HELICOBACTER INFECTION
     Dosage: 1000 MILLIGRAM, QD
     Route: 065
     Dates: start: 20191030
  3. AMOXICILLIN. [Concomitant]
     Active Substance: AMOXICILLIN
     Indication: PRODUCT USED FOR UNKNOWN INDICATION
     Dosage: 2000 MILLIGRAM, QD
     Route: 065
     Dates: start: 20191030, end: 20191128
  4. PANTOPRAZOLE [Concomitant]
     Active Substance: PANTOPRAZOLE
     Indication: OESOPHAGITIS
     Dosage: 40 MILLIGRAM, QD, IN MORNING
     Route: 065
     Dates: start: 20191029
  5. CINCHOCAINE [Concomitant]
     Active Substance: DIBUCAINE
     Indication: HAEMORRHOIDS
     Dosage: 30 GRAM, APPLY EACH MORNING AND NIGHT AND AFTER A BOWEL MOVEMENT
     Route: 065
     Dates: start: 20191125, end: 20191224
  6. DUAC [Concomitant]
     Active Substance: BENZOYL PEROXIDE\CLINDAMYCIN PHOSPHATE
     Indication: PRODUCT USED FOR UNKNOWN INDICATION
     Dosage: 1 DOSAGE FORM, QD, APPLY IN EVENING
     Dates: start: 20191129, end: 20200111
  7. HYDROCORTISONE. [Concomitant]
     Active Substance: HYDROCORTISONE
     Indication: HAEMORRHOIDS
     Dosage: 30 GRAM, APPLY EACH MORNING AND NIGHT AND AFTER A BOWEL MOVEMENT
     Route: 065
     Dates: start: 20191125, end: 20191224
  8. NYSTATIN. [Concomitant]
     Active Substance: NYSTATIN
     Indication: OESOPHAGITIS
     Dosage: 400000 INTERNATIONAL UNIT, QD, DROPS
     Route: 065
     Dates: start: 20200124
  9. FLUCONAZOLE. [Concomitant]
     Active Substance: FLUCONAZOLE
     Indication: OESOPHAGITIS
     Dosage: 50 MILLIGRAM, QD
     Route: 065
     Dates: start: 20200124
  10. LEVOFLOXACIN. [Suspect]
     Active Substance: LEVOFLOXACIN
     Indication: PRODUCT USED FOR UNKNOWN INDICATION
     Dosage: UNK, PRESCRIBED IN ROMANIA
     Route: 065

REACTIONS (2)
  - Swelling face [Recovered/Resolved]
  - Swollen tongue [Recovered/Resolved]

NARRATIVE: CASE EVENT DATE: 20200115
